FAERS Safety Report 5055000-8 (Version None)
Quarter: 2006Q3

REPORT INFORMATION
  Report Type: 
  Country: None (occurrence: None)
  Receive Date: 20060719
  Receipt Date: 20060712
  Transmission Date: 20061208
  Serious: Yes (Death)
  Sender: FDA-Public Use
  Company Number: GB-GLAXOSMITHKLINE-B0430777A

PATIENT

DRUGS (1)
  1. REQUIP [Suspect]
     Route: 065

REACTIONS (1)
  - DEATH [None]
